FAERS Safety Report 9867185 (Version 1)
Quarter: 2014Q1

REPORT INFORMATION
  Report Type: Spontaneous
  Country: US (occurrence: None)
  Receive Date: 20140203
  Receipt Date: 20140203
  Transmission Date: 20141002
  Serious: Yes (Other)
  Sender: FDA-Public Use
  Company Number: None

PATIENT
  Sex: 0

DRUGS (1)
  1. DEVICE [Suspect]
     Indication: DENTAL CARE
     Dosage: TWO PROCEDURES PER KIT
     Dates: start: 20130630

REACTIONS (1)
  - Sensitivity of teeth [None]
